FAERS Safety Report 5210963-2 (Version None)
Quarter: 2007Q1

REPORT INFORMATION
  Report Type: 
  Country: None (occurrence: None)
  Receive Date: 20070117
  Receipt Date: 20070105
  Transmission Date: 20070707
  Serious: Yes (Hospitalization, Other)
  Sender: FDA-Public Use
  Company Number: US-PFIZER INC-2007002695

PATIENT
  Sex: Male
  Weight: 86.2 kg

DRUGS (5)
  1. CAVERJECT IMPULSE DUAL CHAMBER SYSTEM POWDER, STERILE [Suspect]
     Indication: ERECTILE DYSFUNCTION
  2. EZETIMIBE [Concomitant]
  3. MOBIC [Concomitant]
  4. TRAMADOL HCL [Concomitant]
  5. VITAMIN CAP [Concomitant]

REACTIONS (6)
  - ANXIETY [None]
  - DRUG INEFFECTIVE [None]
  - ERECTION INCREASED [None]
  - ROTATOR CUFF REPAIR [None]
  - SLEEP DISORDER [None]
  - SURGERY [None]
